FAERS Safety Report 5737557-4 (Version None)
Quarter: 2008Q2

REPORT INFORMATION
  Report Type: 
  Country: None (occurrence: None)
  Receive Date: 20080514
  Receipt Date: 20080505
  Transmission Date: 20081010
  Serious: Yes (Life-Threatening, Hospitalization)
  Sender: FDA-Public Use
  Company Number: ES-BAYER-200813935GPV

PATIENT
  Age: 70 Year
  Sex: Male

DRUGS (2)
  1. MOXIFLOXACIN HCL [Suspect]
     Indication: CHRONIC OBSTRUCTIVE PULMONARY DISEASE
     Dosage: TOTAL DAILY DOSE: 400 MG  UNIT DOSE: 400 MG
     Route: 048
     Dates: start: 20080218, end: 20080218
  2. CORTICOSTEROIDS [Concomitant]
     Indication: SUFFOCATION FEELING
     Route: 030

REACTIONS (9)
  - ANAPHYLACTIC REACTION [None]
  - BREATH SOUNDS ABNORMAL [None]
  - GENERALISED OEDEMA [None]
  - HAEMODYNAMIC INSTABILITY [None]
  - OEDEMA PERIPHERAL [None]
  - OXYGEN SATURATION DECREASED [None]
  - SUFFOCATION FEELING [None]
  - TACHYCARDIA [None]
  - WHEEZING [None]
